FAERS Safety Report 4718422-8 (Version None)
Quarter: 2005Q3

REPORT INFORMATION
  Report Type: 
  Country: None (occurrence: None)
  Receive Date: 20050719
  Receipt Date: 20041108
  Transmission Date: 20060218
  Serious: Yes (Other)
  Sender: FDA-Public Use
  Company Number: 2003185216US

PATIENT
  Age: 71 Year
  Sex: Male

DRUGS (8)
  1. CELEBREX [Suspect]
     Indication: ARTHRITIS
     Dosage: 200 MG
     Dates: end: 20030101
  2. BEXTRA [Suspect]
     Indication: ILL-DEFINED DISORDER
  3. DILTIAZEM HYDROCHLORIDE [Concomitant]
  4. ATORVASTATIN CALCIUM [Concomitant]
  5. METOPROLOL SUCCINATE [Concomitant]
  6. LEVOFLOXACIN [Concomitant]
  7. ASPIRIN [Concomitant]
  8. VITAMINS (VITAMINS) [Concomitant]

REACTIONS (2)
  - BLOOD URINE [None]
  - PAIN [None]
